FAERS Safety Report 9115163 (Version 2)
Quarter: 2013Q1

REPORT INFORMATION
  Report Type: Report from Study
  Country: IL (occurrence: IL)
  Receive Date: 20130225
  Receipt Date: 20130312
  Transmission Date: 20140127
  Serious: Yes (Hospitalization)
  Sender: FDA-Public Use
  Company Number: IL-SANOFI-AVENTIS-2013SA001461

PATIENT
  Age: 56 Year
  Sex: Female

DRUGS (13)
  1. AFLIBERCEPT [Suspect]
     Indication: COLORECTAL CANCER METASTATIC
     Route: 042
     Dates: start: 20130101, end: 20130101
  2. 5-FU [Suspect]
     Indication: COLORECTAL CANCER METASTATIC
     Route: 040
     Dates: start: 20130101, end: 20130101
  3. 5-FU [Suspect]
     Indication: COLORECTAL CANCER METASTATIC
     Route: 041
     Dates: start: 20130101, end: 20130101
  4. IRINOTECAN [Suspect]
     Indication: COLORECTAL CANCER METASTATIC
     Route: 042
     Dates: start: 20130101, end: 20130101
  5. LEUCOVORIN [Suspect]
     Indication: COLORECTAL CANCER METASTATIC
     Route: 042
     Dates: start: 20130101, end: 20130101
  6. ACE INHIBITOR NOS [Concomitant]
     Dates: start: 201112
  7. CITALOPRAM [Concomitant]
     Dates: start: 20121227
  8. SEROTONIN ANTAGONISTS [Concomitant]
     Indication: PROPHYLAXIS
     Dates: start: 20130101
  9. CORTICOSTEROIDS [Concomitant]
     Indication: PROPHYLAXIS
     Dates: start: 20130101
  10. GASTRO [Concomitant]
     Indication: PROPHYLAXIS
     Dates: start: 20130101
  11. ANTIEMETICS AND ANTINAUSEANTS [Concomitant]
     Indication: PROPHYLAXIS
     Dates: start: 20130102
  12. LOPERAMIDE [Concomitant]
     Dates: start: 20130102
  13. HYDROCHLOROTHIAZIDE [Concomitant]
     Dates: start: 201112

REACTIONS (1)
  - Hypercalcaemia [Recovered/Resolved]
